FAERS Safety Report 5328452-3 (Version None)
Quarter: 2007Q2

REPORT INFORMATION
  Report Type: 
  Country: None (occurrence: None)
  Receive Date: 20070514
  Receipt Date: 20070430
  Transmission Date: 20071010
  Serious: Yes (Hospitalization)
  Sender: FDA-Public Use
  Company Number: 2007US000905

PATIENT
  Age: 61 Year
  Sex: Male

DRUGS (6)
  1. AMEVIVE [Suspect]
     Indication: PSORIASIS
     Dosage: SEE IMAGE
     Dates: start: 20041201, end: 20050301
  2. AMEVIVE [Suspect]
     Indication: PSORIASIS
     Dosage: SEE IMAGE
     Dates: start: 20060901, end: 20061201
  3. HALDOL [Concomitant]
  4. LORAZEPAM [Concomitant]
  5. BLOPRESS (CANDESARTAN CILEXETIL) [Concomitant]
  6. CLONAZEPAM [Concomitant]

REACTIONS (8)
  - ALTERED STATE OF CONSCIOUSNESS [None]
  - GENERAL PHYSICAL HEALTH DETERIORATION [None]
  - HAEMODYNAMIC INSTABILITY [None]
  - HYPOXIA [None]
  - PNEUMONIA [None]
  - PSEUDOMONAS INFECTION [None]
  - SINUSITIS [None]
  - SPUTUM CULTURE POSITIVE [None]
